FAERS Safety Report 8516447-8 (Version None)
Quarter: 2012Q3

REPORT INFORMATION
  Report Type: 
  Country: None (occurrence: None)
  Receive Date: 20120718
  Receipt Date: 20120713
  Transmission Date: 20120928
  Serious: No
  Sender: FDA-Public Use
  Company Number: US-PFIZER INC-2012134208

PATIENT
  Sex: Male
  Weight: 80 kg

DRUGS (4)
  1. SUTENT [Suspect]
     Indication: GASTROINTESTINAL STROMAL TUMOUR
     Dosage: 37.5 MG, DAILY
     Dates: start: 20120510
  2. GLEEVEC [Suspect]
     Indication: GASTROINTESTINAL STROMAL TUMOUR
     Dosage: 400 MG, DAILY
     Dates: start: 20090701
  3. GLEEVEC [Suspect]
     Dosage: 800 MG, DAILY
     Dates: end: 20120510
  4. PRANDIN [Concomitant]
     Indication: TYPE 2 DIABETES MELLITUS
     Dosage: UNK

REACTIONS (9)
  - FATIGUE [None]
  - GASTROINTESTINAL PAIN [None]
  - GASTROINTESTINAL STROMAL TUMOUR [None]
  - DIARRHOEA [None]
  - BLOOD GLUCOSE DECREASED [None]
  - INSOMNIA [None]
  - CONSTIPATION [None]
  - DISEASE RECURRENCE [None]
  - FLATULENCE [None]
